FAERS Safety Report 16852848 (Version 1)
Quarter: 2019Q3

REPORT INFORMATION
  Report Type: Spontaneous
  Country: US (occurrence: US)
  Receive Date: 20190925
  Receipt Date: 20190925
  Transmission Date: 20191005
  Serious: No
  Sender: FDA-Public Use
  Company Number: US-JNJFOC-20190924393

PATIENT
  Sex: Female

DRUGS (2)
  1. SPRAVATO [Suspect]
     Active Substance: ESKETAMINE
  2. SPRAVATO [Suspect]
     Active Substance: ESKETAMINE
     Indication: DEPRESSION
     Dates: start: 20190911

REACTIONS (5)
  - Hypersensitivity [Unknown]
  - Vomiting [Unknown]
  - Nausea [Unknown]
  - Malaise [Unknown]
  - Dissociation [Unknown]

NARRATIVE: CASE EVENT DATE: 20190911
